FAERS Safety Report 10989917 (Version 1)
Quarter: 2015Q1

REPORT INFORMATION
  Report Type: Spontaneous
  Country: US (occurrence: None)
  Receive Date: 20150326
  Receipt Date: 20150326
  Transmission Date: 20150721
  Serious: No
  Sender: FDA-Public Use
  Company Number: 1000073314

PATIENT
  Age: 75 Year
  Sex: Female

DRUGS (5)
  1. BLOOD PRESSURE MEDICATION (BLOOD PRESSURE MEDICATION) [Concomitant]
  2. ASPIRIN (ACETYLSALICYLIC ACID) [Concomitant]
     Active Substance: ASPIRIN
  3. SYNTHROID [Concomitant]
     Active Substance: LEVOTHYROXINE SODIUM
  4. LINZESS [Suspect]
     Active Substance: LINACLOTIDE
     Indication: DIVERTICULITIS
     Route: 048
     Dates: start: 20141219
  5. CELEBREX [Concomitant]
     Active Substance: CELECOXIB

REACTIONS (3)
  - Intentional product misuse [None]
  - Abdominal pain upper [None]
  - Off label use [None]

NARRATIVE: CASE EVENT DATE: 20141219
